FAERS Safety Report 7246715-1 (Version None)
Quarter: 2011Q1

REPORT INFORMATION
  Report Type: 
  Country: None (occurrence: None)
  Receive Date: 20110127
  Receipt Date: 20110119
  Transmission Date: 20110831
  Serious: Yes (Hospitalization, Other)
  Sender: FDA-Public Use
  Company Number: NL-AMGEN-NLDSP2010002099

PATIENT
  Age: 56 Year
  Sex: Female
  Weight: 59 kg

DRUGS (10)
  1. METHOTREXATE [Concomitant]
  2. DICLOFENAC [Concomitant]
  3. METHOTREXATE SODIUM [Concomitant]
  4. FOLIC ACID [Concomitant]
  5. ENBREL [Suspect]
     Dosage: 50 MG, QWK
     Dates: start: 20101001
  6. PREDNISONE [Concomitant]
  7. ENBREL [Suspect]
     Indication: RHEUMATOID ARTHRITIS
     Dosage: 50 MG, QWK
     Dates: start: 20080101, end: 20100701
  8. OMEPRAZOLE [Concomitant]
  9. PLAQUENIL [Concomitant]
  10. ZALDIAR                            /01625001/ [Concomitant]

REACTIONS (2)
  - MASS [None]
  - VOCAL CORD DISORDER [None]
